FAERS Safety Report 10035647 (Version 2)
Quarter: 2014Q3

REPORT INFORMATION
  Report Type: Spontaneous
  Country: US (occurrence: US)
  Receive Date: 20140325
  Receipt Date: 20140716
  Transmission Date: 20150326
  Serious: Yes (Hospitalization, Other)
  Sender: FDA-Public Use
  Company Number: US-TEVA-470053USA

PATIENT

DRUGS (4)
  1. ARICEPT [Concomitant]
     Active Substance: DONEPEZIL HYDROCHLORIDE
     Indication: AMNESIA
  2. SYNTHROID [Concomitant]
     Active Substance: LEVOTHYROXINE SODIUM
     Indication: HYPOTHYROIDISM
  3. SIMVASTATIN. [Concomitant]
     Active Substance: SIMVASTATIN
     Indication: LIPIDS ABNORMAL
  4. NUVIGIL [Suspect]
     Active Substance: ARMODAFINIL
     Dates: start: 20100806

REACTIONS (4)
  - Cardiac arrest [Unknown]
  - Bradycardia [Unknown]
  - Syncope [Recovered/Resolved with Sequelae]
  - Autonomic nervous system imbalance [Unknown]

NARRATIVE: CASE EVENT DATE: 201403
